FAERS Safety Report 4450314-4 (Version None)
Quarter: 2004Q3

REPORT INFORMATION
  Report Type: 
  Country: None (occurrence: None)
  Receive Date: 20040914
  Receipt Date: 20040901
  Transmission Date: 20050211
  Serious: Yes (Other)
  Sender: FDA-Public Use
  Company Number: 239123

PATIENT
  Sex: Female
  Weight: 4 kg

DRUGS (1)
  1. ACTRAPID? PENFILL? HM (GE) 3 ML (INSULIN HUMAN) SOLUTION FOR INJECTION [Suspect]
     Indication: DIABETES MELLITUS
     Dosage: IU, QD, INTRAUTERINE
     Route: 015
     Dates: start: 20040123

REACTIONS (2)
  - DRUG EXPOSURE DURING PREGNANCY [None]
  - HYPOGLYCAEMIA NEONATAL [None]
